FAERS Safety Report 19693807 (Version 1)
Quarter: 2021Q3

REPORT INFORMATION
  Report Type: Spontaneous
  Country: GB (occurrence: GB)
  Receive Date: 20210812
  Receipt Date: 20210812
  Transmission Date: 20211014
  Serious: Yes (Other)
  Sender: FDA-Public Use
  Company Number: GB-BAYER-2021-191582

PATIENT
  Sex: Female

DRUGS (1)
  1. MIRENA [Suspect]
     Active Substance: LEVONORGESTREL
     Dosage: 20  ?G PER DAY CONTINUOUSLY
     Route: 015
     Dates: start: 20200122

REACTIONS (5)
  - Syncope [None]
  - Abdominal pain [None]
  - Uterine perforation [None]
  - Genital haemorrhage [None]
  - Pain [None]
